FAERS Safety Report 11103849 (Version 2)
Quarter: 2015Q2

REPORT INFORMATION
  Report Type: Spontaneous
  Country: GB (occurrence: GB)
  Receive Date: 20150511
  Receipt Date: 20150511
  Transmission Date: 20150821
  Serious: Yes (Hospitalization)
  Sender: FDA-Public Use
  Company Number: GB-ASTRAZENECA-2015SE42222

PATIENT
  Age: 76 Year
  Sex: Female

DRUGS (10)
  1. BENDROFLUMETHIAZIDE [Suspect]
     Active Substance: BENDROFLUMETHIAZIDE
     Indication: HYPERTENSION
     Dosage: NON ASTRAZENECA PRODUCT
     Route: 048
     Dates: end: 20150414
  2. ATENOLOL. [Concomitant]
     Active Substance: ATENOLOL
     Indication: HYPERTENSION
     Route: 048
     Dates: start: 2008
  3. PERINDOPRIL [Concomitant]
     Active Substance: PERINDOPRIL
     Indication: HYPERTENSION
     Route: 048
     Dates: start: 2008
  4. FELODIPINE. [Suspect]
     Active Substance: FELODIPINE
     Route: 048
     Dates: start: 2015, end: 201503
  5. BENDROFLUMETHIAZIDE [Suspect]
     Active Substance: BENDROFLUMETHIAZIDE
     Indication: HYPERTENSION
     Dosage: NON ASTRAZENECA PRODUCT, 2.5 MG EVERY DAY
     Route: 048
     Dates: start: 2008, end: 2015
  6. ATORVASTATIN [Concomitant]
     Active Substance: ATORVASTATIN
     Route: 048
  7. FELODIPINE. [Suspect]
     Active Substance: FELODIPINE
     Route: 048
     Dates: start: 201503, end: 2015
  8. WARFARIN [Concomitant]
     Active Substance: WARFARIN
     Route: 048
  9. DOXAZOSIN [Concomitant]
     Active Substance: DOXAZOSIN\DOXAZOSIN MESYLATE
     Indication: HYPERTENSION
     Dates: start: 2008
  10. FELODIPINE. [Suspect]
     Active Substance: FELODIPINE
     Route: 048
     Dates: end: 201503

REACTIONS (9)
  - Gout [Recovering/Resolving]
  - Nausea [Unknown]
  - Joint swelling [Unknown]
  - Back pain [Unknown]
  - Hypotension [Unknown]
  - Urinary tract infection [Unknown]
  - Dizziness [Unknown]
  - Hyponatraemia [Recovering/Resolving]
  - Hypokalaemia [Recovering/Resolving]

NARRATIVE: CASE EVENT DATE: 20150419
